FAERS Safety Report 24463296 (Version 1)
Quarter: 2024Q4

REPORT INFORMATION
  Report Type: Report from Study
  Country: US (occurrence: US)
  Receive Date: 20241018
  Receipt Date: 20241018
  Transmission Date: 20250114
  Serious: No
  Sender: ROCHE
  Company Number: US-ROCHE-3009977

PATIENT
  Age: 85 Year
  Sex: Male
  Weight: 68.95 kg

DRUGS (8)
  1. XOLAIR [Suspect]
     Active Substance: OMALIZUMAB
     Indication: Idiopathic urticaria
     Dosage: INJECT 300MG SUBCUTANEOUSLY ONCE A MONTH
     Route: 058
     Dates: start: 2020, end: 2021
  2. XOLAIR [Suspect]
     Active Substance: OMALIZUMAB
     Indication: Chronic spontaneous urticaria
     Route: 058
     Dates: start: 20210222, end: 2023
  3. XOLAIR [Suspect]
     Active Substance: OMALIZUMAB
     Route: 058
     Dates: start: 2023
  4. DOXEPIN [Concomitant]
     Active Substance: DOXEPIN
     Indication: Urticaria
     Dates: start: 2023, end: 20240403
  5. XYZAL [Concomitant]
     Active Substance: LEVOCETIRIZINE DIHYDROCHLORIDE
     Indication: Urticaria
     Dates: start: 2021, end: 2023
  6. EPINEPHRINE [Concomitant]
     Active Substance: EPINEPHRINE
  7. ADVAIR HFA [Concomitant]
     Active Substance: FLUTICASONE PROPIONATE\SALMETEROL XINAFOATE
  8. NASACORT [Concomitant]
     Active Substance: TRIAMCINOLONE ACETONIDE
     Dosage: TWICE DAILY

REACTIONS (7)
  - Urticaria [Recovered/Resolved]
  - Pruritus [Recovered/Resolved]
  - Drug ineffective [Unknown]
  - Urticaria [Unknown]
  - Off label use [Unknown]
  - Nasal turbinate hypertrophy [Unknown]
  - Rhinitis [Unknown]

NARRATIVE: CASE EVENT DATE: 20210101
